FAERS Safety Report 5801965-3 (Version None)
Quarter: 2008Q3

REPORT INFORMATION
  Report Type: 
  Country: None (occurrence: None)
  Receive Date: 20080707
  Receipt Date: 20080623
  Transmission Date: 20090109
  Serious: Yes (Death, Life-Threatening, Hospitalization)
  Sender: FDA-Public Use
  Company Number: JP-AMGEN-US265636

PATIENT
  Sex: Male

DRUGS (15)
  1. ENBREL [Suspect]
     Indication: RHEUMATOID ARTHRITIS
     Route: 058
     Dates: start: 20050601, end: 20080116
  2. GASMOTIN [Concomitant]
     Route: 048
  3. EPADEL [Concomitant]
     Route: 048
  4. OMEPRAL [Concomitant]
     Route: 048
  5. FLUCAM [Concomitant]
     Route: 048
  6. TACROLIMUS [Concomitant]
     Dosage: UNKNOWN
     Route: 065
     Dates: start: 20061101, end: 20071101
  7. ISCOTIN [Concomitant]
     Route: 048
  8. MUCOSTA [Concomitant]
     Route: 048
  9. PLETAL [Concomitant]
     Route: 048
  10. PREDONINE [Concomitant]
     Route: 048
     Dates: end: 20071101
  11. PREDONINE [Concomitant]
     Route: 048
     Dates: start: 20071101
  12. EBRANTIL [Concomitant]
     Route: 048
  13. MUCOSOLVAN [Concomitant]
     Route: 048
  14. ZYLORIC [Concomitant]
     Route: 048
  15. NORVASC [Concomitant]
     Route: 048

REACTIONS (19)
  - ARTERIOSCLEROSIS OBLITERANS [None]
  - CARDIAC FAILURE ACUTE [None]
  - CARDIOMEGALY [None]
  - CONDITION AGGRAVATED [None]
  - EMPHYSEMA [None]
  - GASTROENTERITIS NOROVIRUS [None]
  - HAEMOPTYSIS [None]
  - INTERSTITIAL LUNG DISEASE [None]
  - PNEUMOCYSTIS JIROVECI INFECTION [None]
  - PNEUMOCYSTIS JIROVECI PNEUMONIA [None]
  - PNEUMONIA ASPIRATION [None]
  - RENAL DISORDER [None]
  - RESPIRATORY FAILURE [None]
  - RHEUMATOID ARTHRITIS [None]
  - RHEUMATOID NODULE [None]
  - STAPHYLOCOCCAL SEPSIS [None]
  - VARICELLA [None]
  - VENTRICULAR FIBRILLATION [None]
  - VENTRICULAR TACHYCARDIA [None]
